FAERS Safety Report 19419338 (Version 2)
Quarter: 2021Q4

REPORT INFORMATION
  Report Type: Spontaneous
  Country: US (occurrence: US)
  Receive Date: 20210615
  Receipt Date: 20211215
  Transmission Date: 20220303
  Serious: No
  Sender: FDA-Public Use
  Company Number: US-VERTEX PHARMACEUTICALS-2021-003932

PATIENT
  Age: 55 Year
  Sex: Female

DRUGS (3)
  1. TRIKAFTA [Suspect]
     Active Substance: ELEXACAFTOR\IVACAFTOR\TEZACAFTOR
     Indication: Cystic fibrosis
     Dosage: UNK FREQ
     Route: 048
     Dates: start: 20201110, end: 202102
  2. TRIKAFTA [Suspect]
     Active Substance: ELEXACAFTOR\IVACAFTOR\TEZACAFTOR
     Dosage: REDUCED DOSE:ONLY BLUE PILLS
     Route: 048
     Dates: start: 2021, end: 2021
  3. TRIKAFTA [Suspect]
     Active Substance: ELEXACAFTOR\IVACAFTOR\TEZACAFTOR
     Dosage: ONE MORNING PILL AND ONE EVENING BLUE PILL
     Route: 048
     Dates: start: 202108, end: 20210915

REACTIONS (9)
  - Rash [Unknown]
  - Diarrhoea [Unknown]
  - Rhinorrhoea [Unknown]
  - Abdominal discomfort [Not Recovered/Not Resolved]
  - Nasal congestion [Unknown]
  - Varicose vein [Recovering/Resolving]
  - Colitis [Unknown]
  - Peripheral swelling [Recovering/Resolving]
  - Periorbital fat herniation [Not Recovered/Not Resolved]

NARRATIVE: CASE EVENT DATE: 20201101
